FAERS Safety Report 18978567 (Version 1)
Quarter: 2021Q1

REPORT INFORMATION
  Report Type: Spontaneous
  Country: JP (occurrence: JP)
  Receive Date: 20210307
  Receipt Date: 20210307
  Transmission Date: 20210420
  Serious: Yes (Other)
  Sender: FDA-Public Use
  Company Number: JP-SA-2021SA070857

PATIENT
  Age: 50 Year
  Sex: Male

DRUGS (1)
  1. DUPIXENT [Suspect]
     Active Substance: DUPILUMAB
     Indication: PRODUCT USED FOR UNKNOWN INDICATION
     Dosage: DAILY DOSE: 300 MG
     Route: 058
     Dates: start: 202102

REACTIONS (3)
  - Recurrent cancer [Unknown]
  - Rhinitis [Unknown]
  - Nasal mucosal disorder [Unknown]

NARRATIVE: CASE EVENT DATE: 2021
